FAERS Safety Report 9275192 (Version 2)
Quarter: 2013Q2

REPORT INFORMATION
  Report Type: Spontaneous
  Country: US (occurrence: None)
  Receive Date: 20130430
  Receipt Date: 20130607
  Transmission Date: 20140414
  Serious: Yes (Hospitalization)
  Sender: FDA-Public Use
  Company Number: CLCY20130073

PATIENT
  Age: 72 Year
  Sex: Female
  Weight: 108.86 kg

DRUGS (16)
  1. COLCRYS 0.6 MG [Suspect]
     Indication: GOUT
     Dosage: 2 NOW, 1 EVERY HOUR UP TO 10 TABS
     Route: 048
     Dates: start: 20120801, end: 20120803
  2. ASPIRIN [Concomitant]
  3. BUSPAR (BUSPIRONE HYDROCHLORIDE) [Concomitant]
  4. NOVOLIN (INSULIN) [Concomitant]
  5. NOVOLIN (INSULIN) [Concomitant]
  6. DIOVAN (VALSARTAN) [Concomitant]
  7. TRAMADOL (TRAMADOL HYDROCHLORIDE) [Concomitant]
  8. ALLOPURINOL [Concomitant]
  9. IMDUR (ISOSORBIDE MONONITRATE) [Concomitant]
  10. DIOVAN (VALSARTAN) [Concomitant]
  11. METOPROLOL [Concomitant]
  12. LASIX (FUROSEMIDE) [Concomitant]
  13. GLIPIZIDE [Concomitant]
  14. PROTONIX (PANTOPRAZOLE) [Concomitant]
  15. LIPITOR (ATORVASTATIN) [Concomitant]
  16. PAXIL (PAROXETINE HYDROCHLORIDE) [Concomitant]

REACTIONS (16)
  - Vomiting [None]
  - Lethargy [None]
  - Asthenia [None]
  - Nausea [None]
  - Diarrhoea [None]
  - Alopecia [None]
  - Overdose [None]
  - Headache [None]
  - Cerebral atrophy [None]
  - Cerebral arteriosclerosis [None]
  - White blood cell count decreased [None]
  - Platelet count decreased [None]
  - Monocyte count abnormal [None]
  - Blood glucose increased [None]
  - Blood calcium abnormal [None]
  - Albumin globulin ratio abnormal [None]
